FAERS Safety Report 12562126 (Version 1)
Quarter: 2016Q3

REPORT INFORMATION
  Report Type: Spontaneous
  Country: US (occurrence: US)
  Receive Date: 20160715
  Receipt Date: 20160715
  Transmission Date: 20161109
  Serious: No
  Sender: FDA-Public Use
  Company Number: US-CELGENEUS-USA-2016071297

PATIENT
  Age: 65 Year
  Sex: Male
  Weight: 92.16 kg

DRUGS (1)
  1. OTEZLA [Suspect]
     Active Substance: APREMILAST
     Indication: PSORIASIS
     Dosage: 60 MILLIGRAM
     Route: 048
     Dates: start: 2016, end: 2016

REACTIONS (5)
  - Irritability [Recovered/Resolved]
  - Eructation [Not Recovered/Not Resolved]
  - Blood creatinine increased [Unknown]
  - Dyspnoea [Recovered/Resolved with Sequelae]
  - Mood altered [Recovered/Resolved]

NARRATIVE: CASE EVENT DATE: 201606
